FAERS Safety Report 13760496 (Version 2)
Quarter: 2017Q3

REPORT INFORMATION
  Report Type: Spontaneous
  Country: NO (occurrence: NO)
  Receive Date: 20170717
  Receipt Date: 20170726
  Transmission Date: 20171127
  Serious: Yes (Hospitalization, Other)
  Sender: FDA-Public Use
  Company Number: NO-JNJFOC-20170708961

PATIENT
  Age: 25 Year
  Sex: Female

DRUGS (3)
  1. XARELTO [Suspect]
     Active Substance: RIVAROXABAN
     Indication: PULMONARY EMBOLISM
     Route: 048
     Dates: start: 20151106, end: 201612
  2. XARELTO [Suspect]
     Active Substance: RIVAROXABAN
     Indication: DEEP VEIN THROMBOSIS
     Route: 048
     Dates: start: 20151106, end: 201612
  3. CETIRIZIN [Concomitant]
     Active Substance: CETIRIZINE HYDROCHLORIDE
     Route: 065

REACTIONS (15)
  - Tremor [Unknown]
  - Weight increased [Unknown]
  - Malaise [Unknown]
  - Diarrhoea [Unknown]
  - Angioedema [Unknown]
  - Drug hypersensitivity [Unknown]
  - Swelling [Unknown]
  - Swelling [Unknown]
  - Pyrexia [Unknown]
  - Aphasia [Unknown]
  - Anaphylactic reaction [Unknown]
  - Pharyngeal oedema [Unknown]
  - Hypoaesthesia [Unknown]
  - Feeling cold [Unknown]
  - Pruritus generalised [Unknown]

NARRATIVE: CASE EVENT DATE: 201604
